FAERS Safety Report 18496803 (Version 4)
Quarter: 2021Q1

REPORT INFORMATION
  Report Type: Spontaneous
  Country: US (occurrence: US)
  Receive Date: 20201112
  Receipt Date: 20210106
  Transmission Date: 20210419
  Serious: No
  Sender: FDA-Public Use
  Company Number: US-PFIZER INC-2020443985

PATIENT
  Age: 63 Year
  Sex: Female

DRUGS (1)
  1. IBRANCE [Suspect]
     Active Substance: PALBOCICLIB
     Indication: BREAST CANCER FEMALE
     Dosage: 125 MG, CYCLIC (DAILY FOR 21 DAYS ON, 7 DAYS OFF ON A 28 DAY CYCLE)
     Dates: start: 20201002

REACTIONS (8)
  - Muscle spasms [Unknown]
  - Arthralgia [Unknown]
  - Alopecia [Unknown]
  - Blood pressure decreased [Unknown]
  - Crepitations [Unknown]
  - Myalgia [Unknown]
  - Dizziness [Unknown]
  - Joint stiffness [Unknown]

NARRATIVE: CASE EVENT DATE: 202011
